FAERS Safety Report 9753311 (Version 1)
Quarter: 2013Q4

REPORT INFORMATION
  Report Type: Spontaneous
  Country: US (occurrence: US)
  Receive Date: 20131213
  Receipt Date: 20131213
  Transmission Date: 20140711
  Serious: No
  Sender: FDA-Public Use
  Company Number: US-TEVA-402888USA

PATIENT
  Age: 49 Year
  Sex: Female
  Weight: 92.62 kg

DRUGS (3)
  1. PARAGARD 380A [Suspect]
     Indication: CONTRACEPTION
     Route: 015
     Dates: start: 20130425, end: 20130502
  2. PARAGARD 380A [Suspect]
     Route: 015
     Dates: start: 20130502
  3. HYDROCHLOROTHIAZIDE [Concomitant]
     Indication: HYPERTENSION

REACTIONS (1)
  - Device expulsion [Recovered/Resolved]
